FAERS Safety Report 8122026-7 (Version None)
Quarter: 2012Q1

REPORT INFORMATION
  Report Type: 
  Country: None (occurrence: None)
  Receive Date: 20120207
  Receipt Date: 20120207
  Transmission Date: 20120608
  Serious: No
  Sender: FDA-Public Use
  Company Number: None

PATIENT
  Sex: Female
  Weight: 88.905 kg

DRUGS (1)
  1. SYNTHROID [Suspect]
     Indication: THYROIDECTOMY
     Dosage: 200MCG PO DAILY
     Route: 048

REACTIONS (1)
  - RASH [None]
